FAERS Safety Report 18647573 (Version 1)
Quarter: 2020Q4

REPORT INFORMATION
  Report Type: Spontaneous
  Country: US (occurrence: US)
  Receive Date: 20201222
  Receipt Date: 20201222
  Transmission Date: 20210114
  Serious: No
  Sender: FDA-Public Use
  Company Number: US-RECKITT BENCKISER HEALTHCARE INT LIMITED-RB-82330-2020

PATIENT
  Age: 75 Year
  Sex: Female

DRUGS (2)
  1. DELSYM [Suspect]
     Active Substance: DEXTROMETHORPHAN
     Indication: RESPIRATORY TRACT CONGESTION
     Dosage: UNK, AS DIRECTED
     Route: 065
     Dates: start: 20200111
  2. DELSYM [Suspect]
     Active Substance: DEXTROMETHORPHAN
     Dosage: 20 MILLILITER, SINGLE
     Route: 065
     Dates: start: 20200114

REACTIONS (1)
  - Accidental overdose [Recovered/Resolved]
